FAERS Safety Report 8881035 (Version 1)
Quarter: 2012Q4

REPORT INFORMATION
  Report Type: 
  Country: CN (occurrence: CN)
  Receive Date: 20121101
  Receipt Date: 20121101
  Transmission Date: 20130627
  Serious: Yes (Death, Other)
  Sender: FDA-Public Use
  Company Number: CN-WATSON-2012-18310

PATIENT
  Age: 64 Year
  Sex: Female

DRUGS (1)
  1. SERTRALINE HYDROCHLORIDE (UNKNOWN) [Suspect]
     Indication: DEPRESSION
     Dosage: 50 mg, daily
     Route: 065

REACTIONS (1)
  - Angle closure glaucoma [Recovered/Resolved]
